FAERS Safety Report 5931745-X (Version None)
Quarter: 2008Q4

REPORT INFORMATION
  Report Type: 
  Country: None (occurrence: None)
  Receive Date: 20081027
  Receipt Date: 20081016
  Transmission Date: 20090506
  Serious: Yes (Other)
  Sender: FDA-Public Use
  Company Number: US-WYE-H06421108

PATIENT
  Age: 45 Year
  Sex: Female

DRUGS (2)
  1. EFFEXOR [Suspect]
     Indication: DEPRESSION
     Dosage: UNKNOWN
     Dates: start: 20070101
  2. ORLISTAT [Suspect]
     Indication: WEIGHT DECREASED
     Dosage: UNSPECIFIED
     Route: 048
     Dates: start: 20081005

REACTIONS (3)
  - CONSTIPATION [None]
  - FAECES HARD [None]
  - RECTAL HAEMORRHAGE [None]
